FAERS Safety Report 23935708 (Version 3)
Quarter: 2025Q2

REPORT INFORMATION
  Report Type: Spontaneous
  Country: BE (occurrence: BE)
  Receive Date: 20240604
  Receipt Date: 20250424
  Transmission Date: 20250716
  Serious: Yes (Other)
  Sender: JOHNSON AND JOHNSON
  Company Number: BE-JNJFOC-20240578396

PATIENT

DRUGS (1)
  1. RILPIVIRINE [Suspect]
     Active Substance: RILPIVIRINE
     Indication: Product used for unknown indication
     Route: 065

REACTIONS (6)
  - Rash [Unknown]
  - Hypertension [Unknown]
  - Chest discomfort [Unknown]
  - Back pain [Unknown]
  - Product quality issue [Unknown]
  - Incorrect route of product administration [Unknown]
